FAERS Safety Report 17778139 (Version 1)
Quarter: 2020Q2

REPORT INFORMATION
  Report Type: Spontaneous
  Country: FR (occurrence: FR)
  Receive Date: 20200513
  Receipt Date: 20200513
  Transmission Date: 20200714
  Serious: Yes (Hospitalization)
  Sender: FDA-Public Use
  Company Number: FR-PFIZER INC-2020191275

PATIENT
  Age: 60 Year
  Sex: Male
  Weight: 65 kg

DRUGS (3)
  1. ERBITUX [Suspect]
     Active Substance: CETUXIMAB
     Indication: SQUAMOUS CELL CARCINOMA
     Dosage: 710 MG(J1 J8 J15 J22)
     Route: 042
     Dates: start: 20200403, end: 20200403
  2. CARBOPLATIN. [Suspect]
     Active Substance: CARBOPLATIN
     Indication: SQUAMOUS CELL CARCINOMA
     Dosage: 700 MG, MONTHLY(J1 J22)
     Route: 042
     Dates: start: 20200403, end: 20200403
  3. FLUOROURACIL. [Suspect]
     Active Substance: FLUOROURACIL
     Indication: SQUAMOUS CELL CARCINOMA
     Dosage: 14200 MG, MONTHLY(J1 J22)
     Route: 042
     Dates: start: 20200403, end: 20200407

REACTIONS (1)
  - Pancytopenia [Recovering/Resolving]

NARRATIVE: CASE EVENT DATE: 202004
